FAERS Safety Report 6688350-X (Version None)
Quarter: 2010Q2

REPORT INFORMATION
  Report Type: 
  Country: None (occurrence: None)
  Receive Date: 20100420
  Receipt Date: 20100409
  Transmission Date: 20101027
  Serious: Yes (Other)
  Sender: FDA-Public Use
  Company Number: PHHY2010US22630

PATIENT
  Sex: Female

DRUGS (9)
  1. DIOVAN [Suspect]
     Dosage: 160 MG, UNK
  2. POTASSIUM [Concomitant]
  3. ISOSORBIDE MN [Concomitant]
  4. ENALAPRIL MALEATE [Concomitant]
  5. ATENOLOL [Concomitant]
  6. PREDNISONE [Concomitant]
  7. LASIX [Concomitant]
  8. NORVASC [Concomitant]
  9. VITAMINS [Concomitant]

REACTIONS (11)
  - ARTHROPATHY [None]
  - CARDIAC FAILURE CONGESTIVE [None]
  - CONTUSION [None]
  - DECREASED INTEREST [None]
  - FACIAL BONES FRACTURE [None]
  - FALL [None]
  - FATIGUE [None]
  - HAEMORRHOIDS [None]
  - HEAD INJURY [None]
  - RECTAL HAEMORRHAGE [None]
  - RIB FRACTURE [None]
